FAERS Safety Report 7983941 (Version 5)
Quarter: 2014Q2

REPORT INFORMATION
  Report Type: Spontaneous
  Country: US (occurrence: US)
  Receive Date: 20110609
  Receipt Date: 20140416
  Transmission Date: 20141212
  Serious: Yes (Hospitalization, Other)
  Sender: FDA-Public Use
  Company Number: US-ASTRAZENECA-2011SE33828

PATIENT
  Age: 57 Year
  Sex: Female
  Weight: 71.7 kg

DRUGS (14)
  1. NEXIUM [Suspect]
     Indication: GASTROOESOPHAGEAL REFLUX DISEASE
     Route: 048
     Dates: start: 2001, end: 20140330
  2. NEXIUM [Suspect]
     Indication: GASTROOESOPHAGEAL REFLUX DISEASE
     Route: 048
  3. TOPROL XL [Suspect]
     Dosage: GENERIC
     Route: 065
  4. TOPROL XL [Suspect]
     Route: 048
  5. PRILOSEC [Suspect]
     Route: 048
  6. ALPRAZOLAM [Concomitant]
  7. HYDROCHLOROTHIAZIDE [Concomitant]
  8. NEURONTON [Concomitant]
     Indication: NEUROPATHY PERIPHERAL
     Route: 048
     Dates: start: 2009
  9. XANAX [Concomitant]
     Indication: ANXIETY
     Route: 048
     Dates: start: 1980
  10. XANAX [Concomitant]
     Indication: DEPRESSION
     Route: 048
     Dates: start: 1980
  11. AMIODARONE [Concomitant]
     Indication: CARDIAC DISORDER
     Route: 048
     Dates: start: 201302, end: 201303
  12. AMIODARONE [Concomitant]
     Indication: CARDIAC DISORDER
     Route: 048
     Dates: start: 201303, end: 201402
  13. AMIODARONE [Concomitant]
     Indication: CARDIAC DISORDER
     Route: 048
     Dates: start: 201402
  14. PREDNISONE [Concomitant]

REACTIONS (21)
  - Blood potassium decreased [Recovered/Resolved]
  - Electrocardiogram abnormal [Recovered/Resolved]
  - Cerebrovascular accident [Unknown]
  - Pneumothorax [Recovered/Resolved]
  - Dyspnoea [Recovered/Resolved]
  - Barrett^s oesophagus [Unknown]
  - Transient ischaemic attack [Unknown]
  - Pain [Unknown]
  - Palpitations [Unknown]
  - Peripheral venous disease [Unknown]
  - Peripheral swelling [Unknown]
  - Weight increased [Unknown]
  - Overweight [Unknown]
  - Pain in extremity [Unknown]
  - Neuropathy peripheral [Not Recovered/Not Resolved]
  - Cough [Not Recovered/Not Resolved]
  - Chronic obstructive pulmonary disease [Not Recovered/Not Resolved]
  - Bronchitis [Unknown]
  - Paraesthesia [Unknown]
  - Drug ineffective [Unknown]
  - Drug dose omission [Unknown]
